FAERS Safety Report 4914917-2 (Version None)
Quarter: 2006Q1

REPORT INFORMATION
  Report Type: 
  Country: None (occurrence: None)
  Receive Date: 20060215
  Receipt Date: 20060215
  Transmission Date: 20060701
  Serious: Yes (Hospitalization)
  Sender: FDA-Public Use
  Company Number: None

PATIENT
  Age: 33 Year
  Sex: Male

DRUGS (2)
  1. PHENYTOIN [Suspect]
     Indication: CONVULSION
     Dosage: 500 MG HS PO
     Route: 048
  2. IBUPROFEN [Suspect]
     Indication: PYREXIA
     Dosage: 400 MG TID PO
     Route: 048
     Dates: start: 20051001, end: 20051006

REACTIONS (4)
  - DRUG HYPERSENSITIVITY [None]
  - RENAL FAILURE ACUTE [None]
  - SICKLE CELL ANAEMIA WITH CRISIS [None]
  - TUBULOINTERSTITIAL NEPHRITIS [None]
